FAERS Safety Report 19040559 (Version 1)
Quarter: 2021Q1

REPORT INFORMATION
  Report Type: Spontaneous
  Country: US (occurrence: US)
  Receive Date: 20210322
  Receipt Date: 20210322
  Transmission Date: 20210420
  Serious: Yes (Other)
  Sender: FDA-Public Use
  Company Number: US-GW PHARMA-202103USGW01136

PATIENT

DRUGS (2)
  1. EPIDIOLEX [Suspect]
     Active Substance: CANNABIDIOL
     Indication: EPILEPSY
     Dosage: 16.96 MG/KG/DAY, 150 MILLIGRAM, BID (0.5 ML EVERY MORNING AND 1 ML EVERY EVENING)
     Route: 048
     Dates: start: 20181218
  2. EPIDIOLEX [Suspect]
     Active Substance: CANNABIDIOL
     Dosage: UNK (TAPERING DOSAGE DOWN)
     Route: 048

REACTIONS (1)
  - Seizure [Unknown]
